FAERS Safety Report 10096103 (Version 2)
Quarter: 2014Q2

REPORT INFORMATION
  Report Type: Spontaneous
  Country: JP (occurrence: JP)
  Receive Date: 20140422
  Receipt Date: 20140516
  Transmission Date: 20141212
  Serious: Yes (Death)
  Sender: FDA-Public Use
  Company Number: JP-BRISTOL-MYERS SQUIBB COMPANY-20653820

PATIENT
  Age: 71 Year
  Sex: Male

DRUGS (3)
  1. BARACLUDE TABS 0.5 MG [Suspect]
     Indication: CHRONIC HEPATITIS B
     Route: 048
     Dates: start: 201004
  2. ANAGLIPTIN [Suspect]
     Route: 048
     Dates: start: 201402
  3. AMLODIPINE [Concomitant]
     Route: 048
     Dates: start: 201006

REACTIONS (1)
  - Multi-organ failure [Fatal]
